FAERS Safety Report 5567257-5 (Version None)
Quarter: 2007Q4

REPORT INFORMATION
  Report Type: 
  Country: None (occurrence: None)
  Receive Date: 20071219
  Receipt Date: 20071217
  Transmission Date: 20080405
  Serious: Yes (Other)
  Sender: FDA-Public Use
  Company Number: DE-BOEHRINGER INGELHEIM PHARMACEUTICALS, INC.-2007-DE-04201DE

PATIENT
  Sex: Male
  Weight: 80 kg

DRUGS (2)
  1. CLONIDINE HCL [Suspect]
     Route: 058
  2. SUFENTA [Suspect]
     Route: 058

REACTIONS (3)
  - MEDICATION ERROR [None]
  - OVERDOSE [None]
  - SOMNOLENCE [None]
